FAERS Safety Report 18781465 (Version 1)
Quarter: 2021Q1

REPORT INFORMATION
  Report Type: Spontaneous
  Country: US (occurrence: US)
  Receive Date: 20210123
  Receipt Date: 20210123
  Transmission Date: 20210419
  Serious: Yes (Hospitalization)
  Sender: FDA-Public Use
  Company Number: None

PATIENT
  Age: 62 Year
  Sex: Male
  Weight: 85 kg

DRUGS (2)
  1. EVEROLIMUS (RAD?001) [Suspect]
     Active Substance: EVEROLIMUS
     Dates: end: 20210107
  2. NEXAVAR [Suspect]
     Active Substance: SORAFENIB
     Dates: end: 20210107

REACTIONS (3)
  - Disease progression [None]
  - Fall [None]
  - Spinal cord compression [None]

NARRATIVE: CASE EVENT DATE: 20210112
